FAERS Safety Report 22374078 (Version 1)
Quarter: 2023Q2

REPORT INFORMATION
  Report Type: Spontaneous
  Country: BR (occurrence: BR)
  Receive Date: 20230526
  Receipt Date: 20230526
  Transmission Date: 20230721
  Serious: Yes (Death, Other)
  Sender: FDA-Public Use
  Company Number: BR-002147023-NVSC2023BR120238

PATIENT
  Sex: Female

DRUGS (1)
  1. NILOTINIB [Suspect]
     Active Substance: NILOTINIB
     Indication: Chronic myeloid leukaemia
     Dosage: UNK
     Route: 065

REACTIONS (5)
  - Death [Fatal]
  - Chronic myeloid leukaemia [Unknown]
  - Blast crisis in myelogenous leukaemia [Unknown]
  - Chronic myeloid leukaemia transformation [Unknown]
  - Maternal exposure during pregnancy [Unknown]
